FAERS Safety Report 7668536-8 (Version None)
Quarter: 2011Q3

REPORT INFORMATION
  Report Type: 
  Country: None (occurrence: None)
  Receive Date: 20110703
  Receipt Date: 20110627
  Transmission Date: 20111222
  Serious: Yes (Other)
  Sender: FDA-Public Use
  Company Number: CRC-11-163

PATIENT
  Sex: Female
  Weight: 62.1428 kg

DRUGS (1)
  1. VENLAFAXINE HCL [Suspect]
     Indication: ANXIETY
     Dosage: 1 TABLET 1X/DAY
     Dates: start: 20110615, end: 20110616

REACTIONS (6)
  - NAUSEA [None]
  - VOMITING [None]
  - APHAGIA [None]
  - IMPAIRED DRIVING ABILITY [None]
  - VISION BLURRED [None]
  - DIZZINESS [None]
